FAERS Safety Report 7199244-8 (Version None)
Quarter: 2010Q4

REPORT INFORMATION
  Report Type: 
  Country: None (occurrence: None)
  Receive Date: 20101223
  Receipt Date: 20101223
  Transmission Date: 20110411
  Serious: Yes (Hospitalization)
  Sender: FDA-Public Use
  Company Number: None

PATIENT
  Sex: Male
  Weight: 88.5 kg

DRUGS (19)
  1. EVEROLIMUS [Suspect]
     Dosage: 5 MG DAILY PO
     Route: 048
     Dates: start: 20100611
  2. ZOFRAN [Concomitant]
  3. LORAZEPAM [Concomitant]
  4. COLACE [Concomitant]
  5. REGLAN [Concomitant]
  6. TAMSULOSIN [Concomitant]
  7. NEXIUM [Concomitant]
  8. OXYCONTIN [Concomitant]
  9. OXYCODONESENNA [Concomitant]
  10. SENNA [Concomitant]
  11. .. [Concomitant]
  12. .. [Concomitant]
  13. .. [Concomitant]
  14. .. [Concomitant]
  15. .. [Concomitant]
  16. .. [Concomitant]
  17. .. [Concomitant]
  18. .. [Concomitant]
  19. .. [Concomitant]

REACTIONS (3)
  - LETHARGY [None]
  - NAUSEA [None]
  - VOMITING [None]
